FAERS Safety Report 4886244-3 (Version None)
Quarter: 2006Q1

REPORT INFORMATION
  Report Type: 
  Country: None (occurrence: None)
  Receive Date: 20060120
  Receipt Date: 20060113
  Transmission Date: 20060701
  Serious: Yes (Other)
  Sender: FDA-Public Use
  Company Number: PHEH2006US00910

PATIENT
  Sex: Female

DRUGS (6)
  1. RELPAX [Concomitant]
     Indication: MIGRAINE
     Route: 065
  2. MAXALT /USA/ [Concomitant]
     Indication: MIGRAINE
  3. ZOMIG [Concomitant]
  4. IMITREX [Concomitant]
     Indication: MIGRAINE
  5. FROVA [Concomitant]
     Indication: MIGRAINE
     Route: 065
  6. CAFERGOT [Suspect]
     Indication: MIGRAINE
     Route: 065

REACTIONS (1)
  - BRAIN DAMAGE [None]
